FAERS Safety Report 5023379-9 (Version None)
Quarter: 2006Q2

REPORT INFORMATION
  Report Type: 
  Country: None (occurrence: None)
  Receive Date: 20060606
  Receipt Date: 20060523
  Transmission Date: 20061013
  Serious: Yes (Hospitalization)
  Sender: FDA-Public Use
  Company Number: CLOF-10238

PATIENT
  Age: 9 Year
  Sex: Male

DRUGS (8)
  1. CLOFARABINE [Suspect]
     Indication: ACUTE LYMPHOCYTIC LEUKAEMIA
     Dosage: 50 MG QD IV
     Route: 042
     Dates: start: 20060425, end: 20060427
  2. LARGACTIL [Concomitant]
  3. ZOPHREN [Concomitant]
  4. FASTURTEC [Concomitant]
  5. TRANXENE [Concomitant]
  6. ZANTAC [Concomitant]
  7. POLARAMINE [Concomitant]
  8. BACTRIM [Concomitant]

REACTIONS (6)
  - DERMATITIS ALLERGIC [None]
  - HEADACHE [None]
  - PYREXIA [None]
  - RASH MORBILLIFORM [None]
  - THERAPY NON-RESPONDER [None]
  - URTICARIA [None]
